FAERS Safety Report 6754748-4 (Version None)
Quarter: 2010Q2

REPORT INFORMATION
  Report Type: 
  Country: None (occurrence: None)
  Receive Date: 20100601
  Receipt Date: 20100520
  Transmission Date: 20101027
  Serious: Yes (Hospitalization)
  Sender: FDA-Public Use
  Company Number: OMPQ-NO-1005S-0320

PATIENT
  Age: 50 Year
  Sex: Male
  Weight: 65 kg

DRUGS (1)
  1. OMNIPAQUE 140 [Suspect]
     Indication: DRUG USE FOR UNKNOWN INDICATION
     Dosage: 70 ML, SINGLE DOSE, I.V.
     Route: 042
     Dates: start: 20100512, end: 20100512

REACTIONS (5)
  - CHILLS [None]
  - CONTRAST MEDIA REACTION [None]
  - DELIRIUM [None]
  - PYREXIA [None]
  - WHITE BLOOD CELL COUNT INCREASED [None]
